FAERS Safety Report 5899476-2 (Version None)
Quarter: 2008Q3

REPORT INFORMATION
  Report Type: 
  Country: None (occurrence: None)
  Receive Date: 20080926
  Receipt Date: 20080917
  Transmission Date: 20090109
  Serious: Yes (Hospitalization)
  Sender: FDA-Public Use
  Company Number: US-JNJFOC-20080904400

PATIENT
  Sex: Female
  Weight: 59.8 kg

DRUGS (7)
  1. DOXIL [Suspect]
     Route: 042
  2. DOXIL [Suspect]
     Indication: MULTIPLE MYELOMA
     Route: 042
  3. VELCADE [Suspect]
     Route: 042
  4. VELCADE [Suspect]
     Route: 042
  5. VELCADE [Suspect]
     Route: 042
  6. VELCADE [Suspect]
     Indication: MULTIPLE MYELOMA
     Route: 042
  7. THALIDOMIDE [Suspect]
     Indication: MULTIPLE MYELOMA
     Route: 048

REACTIONS (3)
  - DIZZINESS [None]
  - RASH [None]
  - TREMOR [None]
